FAERS Safety Report 8875045 (Version 2)
Quarter: 2013Q1

REPORT INFORMATION
  Report Type: Spontaneous
  Country: GR (occurrence: GR)
  Receive Date: 20121023
  Receipt Date: 20130226
  Transmission Date: 20140127
  Serious: Yes (Other)
  Sender: FDA-Public Use
  Company Number: GR-ROCHE-1143911

PATIENT
  Age: 54 Year
  Sex: Female

DRUGS (5)
  1. MABTHERA [Suspect]
     Indication: DEMYELINATING POLYNEUROPATHY
     Route: 065
     Dates: start: 201201
  2. MABTHERA [Suspect]
     Route: 065
     Dates: start: 201209
  3. CORTISONE [Suspect]
     Indication: DEMYELINATING POLYNEUROPATHY
     Route: 065
  4. ENDOXAN [Suspect]
     Indication: DEMYELINATING POLYNEUROPATHY
     Route: 065
  5. UNSPECIFIED [Suspect]
     Indication: DEMYELINATING POLYNEUROPATHY
     Route: 065

REACTIONS (6)
  - Paralysis [Recovered/Resolved]
  - Joint swelling [Not Recovered/Not Resolved]
  - Arthralgia [Not Recovered/Not Resolved]
  - Fatigue [Not Recovered/Not Resolved]
  - Mobility decreased [Not Recovered/Not Resolved]
  - Unevaluable event [Not Recovered/Not Resolved]
